FAERS Safety Report 11881859 (Version 5)
Quarter: 2017Q1

REPORT INFORMATION
  Report Type: Spontaneous
  Country: US (occurrence: US)
  Receive Date: 20151231
  Receipt Date: 20170123
  Transmission Date: 20170428
  Serious: Yes (Life-Threatening, Hospitalization, Other)
  Sender: FDA-Public Use
  Company Number: US-BAYER-2015-495298

PATIENT
  Age: 25 Year
  Sex: Female
  Weight: 56.69 kg

DRUGS (1)
  1. MIRENA [Suspect]
     Active Substance: LEVONORGESTREL
     Indication: CONTRACEPTION
     Dosage: 20 MCG/24HR, CONT
     Route: 015
     Dates: start: 20110214, end: 20140619

REACTIONS (11)
  - Pregnancy with contraceptive device [None]
  - Abdominal pain lower [None]
  - Abortion spontaneous [None]
  - Depression [None]
  - Device issue [None]
  - Stress [None]
  - Genital haemorrhage [None]
  - Uterine leiomyoma [None]
  - Drug ineffective [None]
  - Anxiety [None]
  - Uterine perforation [None]

NARRATIVE: CASE EVENT DATE: 201102
